FAERS Safety Report 7079848-3 (Version None)
Quarter: 2010Q4

REPORT INFORMATION
  Report Type: 
  Country: None (occurrence: None)
  Receive Date: 20101102
  Receipt Date: 20101026
  Transmission Date: 20110411
  Serious: Yes (Hospitalization)
  Sender: FDA-Public Use
  Company Number: JP-MPIJNJ-2010-05323

PATIENT

DRUGS (2)
  1. VELCADE [Suspect]
     Indication: MULTIPLE MYELOMA
     Dosage: 1.4 MG, UNK
     Route: 042
     Dates: start: 20100316, end: 20101006
  2. DECADRON [Concomitant]
     Dosage: 8 MG, UNK
     Route: 048

REACTIONS (2)
  - HYPOAESTHESIA [None]
  - INFECTION [None]
